FAERS Safety Report 7919345-3 (Version None)
Quarter: 2011Q4

REPORT INFORMATION
  Report Type: 
  Country: None (occurrence: None)
  Receive Date: 20111117
  Receipt Date: 20111108
  Transmission Date: 20120403
  Serious: Yes (Death)
  Sender: FDA-Public Use
  Company Number: JP-JNJFOC-20111106383

PATIENT
  Age: 7 Decade
  Sex: Female

DRUGS (10)
  1. LEVOFLOXACIN [Suspect]
     Indication: EXTRAPULMONARY TUBERCULOSIS
     Route: 065
  2. CIPROFLOXACIN HCL [Concomitant]
     Indication: EXTRAPULMONARY TUBERCULOSIS
     Route: 065
  3. RIFADIN [Suspect]
     Indication: EXTRAPULMONARY TUBERCULOSIS
     Route: 065
  4. STREPTOMYCIN [Concomitant]
     Indication: PULMONARY TUBERCULOSIS
     Route: 065
  5. ETHAMBUTOL HYDROCHLORIDE [Concomitant]
     Indication: EXTRAPULMONARY TUBERCULOSIS
     Route: 065
  6. RIFADIN [Suspect]
     Indication: PULMONARY TUBERCULOSIS
     Route: 065
  7. ETHAMBUTOL HYDROCHLORIDE [Concomitant]
     Indication: PULMONARY TUBERCULOSIS
     Route: 065
  8. CIPROFLOXACIN HCL [Concomitant]
     Indication: PULMONARY TUBERCULOSIS
     Route: 065
  9. STREPTOMYCIN [Concomitant]
     Indication: EXTRAPULMONARY TUBERCULOSIS
     Route: 065
  10. LEVOFLOXACIN [Suspect]
     Indication: PULMONARY TUBERCULOSIS
     Route: 065

REACTIONS (2)
  - RENAL IMPAIRMENT [None]
  - BLOOD BILIRUBIN INCREASED [None]
